FAERS Safety Report 5301846-8 (Version None)
Quarter: 2007Q2

REPORT INFORMATION
  Report Type: 
  Country: None (occurrence: None)
  Receive Date: 20070416
  Receipt Date: 20070416
  Transmission Date: 20071010
  Serious: Yes (Hospitalization)
  Sender: FDA-Public Use
  Company Number: None

PATIENT
  Age: 54 Year
  Sex: Female

DRUGS (5)
  1. CETUXIMAB [Suspect]
     Indication: BREAST CANCER STAGE IV
     Dosage: 250MG/M2 WEEKLY IV
     Route: 042
     Dates: start: 20070302, end: 20070323
  2. CARBOPLATIN [Suspect]
     Indication: BREAST CANCER STAGE IV
     Dosage: AUC 2 WEEKLY 3OF4 WEEK IV
     Route: 042
     Dates: start: 20070302, end: 20070316
  3. LEVOTHYROXINE SODIUM [Concomitant]
  4. BUPROPION (SUSTAINED RELEASE) [Concomitant]
  5. METOPROLOL SUCCINATE [Concomitant]

REACTIONS (9)
  - ASTHENIA [None]
  - COORDINATION ABNORMAL [None]
  - DISEASE PROGRESSION [None]
  - DROOLING [None]
  - DYSMORPHISM [None]
  - DYSPHAGIA [None]
  - NEUROLOGICAL SYMPTOM [None]
  - PERIPHERAL MOTOR NEUROPATHY [None]
  - TREMOR [None]
